FAERS Safety Report 5265995-5 (Version None)
Quarter: 2007Q1

REPORT INFORMATION
  Report Type: 
  Country: None (occurrence: None)
  Receive Date: 20070315
  Receipt Date: 20070302
  Transmission Date: 20070707
  Serious: Yes (Other)
  Sender: FDA-Public Use
  Company Number: PHBS2007BE03931

PATIENT
  Sex: Female

DRUGS (1)
  1. PARLODEL [Suspect]
     Indication: PITUITARY TUMOUR
     Route: 048
     Dates: start: 19850101

REACTIONS (4)
  - BONE PAIN [None]
  - CACHEXIA [None]
  - GENERAL PHYSICAL HEALTH DETERIORATION [None]
  - WEIGHT DECREASED [None]
